FAERS Safety Report 25961487 (Version 2)
Quarter: 2025Q4

REPORT INFORMATION
  Report Type: Spontaneous
  Country: US (occurrence: US)
  Receive Date: 20251027
  Receipt Date: 20251124
  Transmission Date: 20260117
  Serious: Yes (Other)
  Sender: GILEAD
  Company Number: US-GILEAD-2025-0732958

PATIENT
  Age: 35 Year
  Sex: Male
  Weight: 61.678 kg

DRUGS (2)
  1. YEZTUGO [Suspect]
     Active Substance: LENACAPAVIR SODIUM
     Indication: Product used for unknown indication
     Dosage: UNK, 2 INJECTIONS IN ABDOMEN
     Route: 065
     Dates: start: 20251015
  2. YEZTUGO [Suspect]
     Active Substance: LENACAPAVIR SODIUM
     Indication: Product used for unknown indication
     Dosage: UNK TABLETS
     Route: 065

REACTIONS (4)
  - Loss of consciousness [Recovered/Resolved]
  - Pain [Recovered/Resolved]
  - Tenderness [Not Recovered/Not Resolved]
  - Hypotension [Unknown]

NARRATIVE: CASE EVENT DATE: 20251015
